FAERS Safety Report 16801542 (Version 1)
Quarter: 2019Q3

REPORT INFORMATION
  Report Type: Spontaneous
  Country: US (occurrence: US)
  Receive Date: 20190912
  Receipt Date: 20190912
  Transmission Date: 20191005
  Serious: No
  Sender: FDA-Public Use
  Company Number: US-AMNEAL PHARMACEUTICALS-2019AMN00347

PATIENT
  Sex: Female
  Weight: 71.21 kg

DRUGS (1)
  1. GABAPENTIN. [Suspect]
     Active Substance: GABAPENTIN
     Indication: OPEN FRACTURE
     Dosage: 300 MG, 3X/DAY
     Route: 048
     Dates: start: 2018

REACTIONS (2)
  - Amnesia [Unknown]
  - Neuralgia [Unknown]
